FAERS Safety Report 9562862 (Version 1)
Quarter: 2013Q3

REPORT INFORMATION
  Report Type: Spontaneous
  Country: US (occurrence: US)
  Receive Date: 20130927
  Receipt Date: 20130927
  Transmission Date: 20140515
  Serious: Yes (Other)
  Sender: FDA-Public Use
  Company Number: US-BAXTER-2013BAX037050

PATIENT
  Age: 38 Year
  Sex: Female

DRUGS (4)
  1. OSMITROL INJECTION (MANNITOL INJECTION, USP) [Suspect]
     Indication: FLUID OVERLOAD
     Route: 042
     Dates: start: 19630214
  2. OSMITROL INJECTION (MANNITOL INJECTION, USP) [Suspect]
     Indication: OLIGURIA
     Dosage: 1000 CC OVER 6 HOURS
  3. STREPTOMYCIN [Suspect]
     Indication: MASTOIDITIS
  4. CHLORAMPHENICOL [Suspect]
     Indication: MASTOIDITIS

REACTIONS (4)
  - Renal disorder [Recovering/Resolving]
  - Nephrotic syndrome [Recovered/Resolved]
  - Hyponatraemia [Recovered/Resolved]
  - Anaemia [Recovered/Resolved]
